FAERS Safety Report 4448360-X (Version None)
Quarter: 2004Q3

REPORT INFORMATION
  Report Type: 
  Country: None (occurrence: None)
  Receive Date: 20040910
  Receipt Date: 20040910
  Transmission Date: 20050211
  Serious: No
  Sender: FDA-Public Use
  Company Number: None

PATIENT
  Age: 5 Month
  Sex: Male
  Weight: 7.7111 kg

DRUGS (3)
  1. TYLENOL INFANTS DROPS CONCENTRATED 80MG/ML TYLENOL [Suspect]
     Indication: BRONCHIOLITIS
     Dosage: 0.8ML EVERY 4-6 ORAL
     Route: 048
     Dates: start: 20040831, end: 20040903
  2. TYLENOL INFANTS DROPS CONCENTRATED 80MG/ML TYLENOL [Suspect]
     Indication: NASOPHARYNGITIS
     Dosage: 0.8ML EVERY 4-6 ORAL
     Route: 048
     Dates: start: 20040831, end: 20040903
  3. TYLENOL INFANTS DROPS CONCENTRATED 80MG/ML TYLENOL [Suspect]
     Indication: PYREXIA
     Dosage: 0.8ML EVERY 4-6 ORAL
     Route: 048
     Dates: start: 20040831, end: 20040903

REACTIONS (3)
  - DISCOMFORT [None]
  - DRUG EFFECT DECREASED [None]
  - PHARMACEUTICAL PRODUCT COMPLAINT [None]
